FAERS Safety Report 7392900-8 (Version None)
Quarter: 2011Q2

REPORT INFORMATION
  Report Type: 
  Country: None (occurrence: None)
  Receive Date: 20110404
  Receipt Date: 20110310
  Transmission Date: 20111010
  Serious: No
  Sender: FDA-Public Use
  Company Number: US-B.I. PHARMACEUTICALS,INC./RIDGEFIELD-2011-BP-07677BP

PATIENT
  Sex: Female

DRUGS (13)
  1. ASPIRIN [Concomitant]
     Dosage: 325 MG
  2. CALCIUM [Concomitant]
     Indication: SUPPLEMENTATION THERAPY
  3. THEOPHYLLINE [Concomitant]
     Indication: EMPHYSEMA
  4. LOVASTATIN [Concomitant]
     Indication: BLOOD CHOLESTEROL INCREASED
  5. SPIRIVA [Suspect]
     Indication: EMPHYSEMA
     Dosage: 18 MCG
     Route: 055
     Dates: start: 20110217
  6. ALENDRONATE [Concomitant]
     Indication: OSTEOPOROSIS
  7. DIOVAN [Concomitant]
     Indication: HYPERTENSION
  8. OXYGEN [Concomitant]
     Indication: EMPHYSEMA
  9. PLAVIX [Concomitant]
     Indication: PROPHYLAXIS
  10. ALBUTEROL [Concomitant]
     Indication: EMPHYSEMA
  11. MULTI-VITAMIN [Concomitant]
     Indication: SUPPLEMENTATION THERAPY
  12. LEVOTHYROXINE SODIUM [Concomitant]
     Indication: HYPOTHYROIDISM
  13. CRANBERRY CAPUSLE [Concomitant]

REACTIONS (2)
  - UPPER-AIRWAY COUGH SYNDROME [None]
  - NASAL CONGESTION [None]
